FAERS Safety Report 14267418 (Version 1)
Quarter: 2017Q4

REPORT INFORMATION
  Report Type: Spontaneous
  Country: US (occurrence: US)
  Receive Date: 20171209
  Receipt Date: 20171209
  Transmission Date: 20180321
  Serious: Yes (Other)
  Sender: FDA-Public Use
  Company Number: None

PATIENT
  Age: 29 Year
  Sex: Male
  Weight: 81 kg

DRUGS (2)
  1. ICY HOT [Suspect]
     Active Substance: MENTHOL\METHYL SALICYLATE
     Indication: PAIN
     Route: 061
     Dates: end: 20171206
  2. FAMOTIDINE. [Concomitant]
     Active Substance: FAMOTIDINE

REACTIONS (4)
  - Burning sensation [None]
  - Chemical burn [None]
  - Blister [None]
  - Scar [None]

NARRATIVE: CASE EVENT DATE: 20171209
